FAERS Safety Report 4788180-X (Version None)
Quarter: 2005Q3

REPORT INFORMATION
  Report Type: 
  Country: None (occurrence: None)
  Receive Date: 20050920
  Receipt Date: 20040929
  Transmission Date: 20060218
  Serious: Yes (Other)
  Sender: FDA-Public Use
  Company Number: PHEH2004US10496

PATIENT
  Age: 67 Year
  Sex: Female

DRUGS (2)
  1. DIOVAN [Suspect]
     Indication: HYPERTENSION
     Dosage: 160 MG, QD, ORAL
     Route: 048
     Dates: start: 20010101
  2. IBUPROFEN [Suspect]
     Dates: start: 20040501

REACTIONS (3)
  - HYPERSENSITIVITY [None]
  - OROPHARYNGEAL SWELLING [None]
  - SWELLING FACE [None]
